FAERS Safety Report 6692826-9 (Version None)
Quarter: 2010Q2

REPORT INFORMATION
  Report Type: 
  Country: None (occurrence: None)
  Receive Date: 20100422
  Receipt Date: 20100419
  Transmission Date: 20101027
  Serious: Yes (Death, Life-Threatening)
  Sender: FDA-Public Use
  Company Number: DE-JNJFOC-20080803562

PATIENT
  Age: 74 Year
  Sex: Male

DRUGS (6)
  1. REOPRO [Suspect]
     Indication: ACUTE MYOCARDIAL INFARCTION
     Dosage: 12 HR INFUSION, STOPPED AT 4 HR
     Route: 022
  2. REOPRO [Suspect]
     Route: 022
  3. HEPARIN [Concomitant]
     Indication: ACUTE MYOCARDIAL INFARCTION
  4. HEPARIN [Concomitant]
  5. ASPIRIN [Concomitant]
     Indication: ACUTE MYOCARDIAL INFARCTION
  6. CLOPIDOGREL [Concomitant]
     Indication: ACUTE MYOCARDIAL INFARCTION

REACTIONS (1)
  - CEREBRAL HAEMORRHAGE [None]
